FAERS Safety Report 6857277-2 (Version None)
Quarter: 2010Q3

REPORT INFORMATION
  Report Type: 
  Country: None (occurrence: None)
  Receive Date: 20100719
  Receipt Date: 20100713
  Transmission Date: 20110219
  Serious: Yes (Hospitalization)
  Sender: FDA-Public Use
  Company Number: US-BAYER-201017954BCC

PATIENT
  Age: 28 Year
  Sex: Female
  Weight: 72 kg

DRUGS (4)
  1. ASPIRIN [Suspect]
     Indication: HEADACHE
     Route: 048
     Dates: start: 19710101
  2. LOTENSIN [Concomitant]
     Route: 065
  3. LIPITOR [Concomitant]
     Route: 065
  4. SYNTHROID [Concomitant]
     Route: 065

REACTIONS (2)
  - OEDEMA PERIPHERAL [None]
  - SWELLING FACE [None]
